FAERS Safety Report 25373816 (Version 1)
Quarter: 2025Q2

REPORT INFORMATION
  Report Type: Spontaneous
  Country: US (occurrence: None)
  Receive Date: 20250528
  Receipt Date: 20250528
  Transmission Date: 20250717
  Serious: Yes (unspecified)
  Sender: FDA-CTU
  Company Number: None

PATIENT
  Age: 2 Year
  Sex: Female

DRUGS (1)
  1. SILDENAFIL [Suspect]
     Active Substance: SILDENAFIL
     Indication: Congenital tricuspid valve stenosis
     Dosage: FREQUENCY : EVERY 6 HOURS;?

REACTIONS (1)
  - Product use issue [None]

NARRATIVE: CASE EVENT DATE: 20250518
